FAERS Safety Report 14204889 (Version 1)
Quarter: 2017Q4

REPORT INFORMATION
  Report Type: Spontaneous
  Country: US (occurrence: US)
  Receive Date: 20171118
  Receipt Date: 20171118
  Transmission Date: 20180321
  Serious: No
  Sender: FDA-Public Use
  Company Number: None

PATIENT
  Age: 59 Year
  Sex: Female
  Weight: 70.2 kg

DRUGS (2)
  1. TRIAMTERENE-HCTZ 37.5-25 MG [Suspect]
     Active Substance: HYDROCHLOROTHIAZIDE\TRIAMTERENE
     Indication: BLOOD PRESSURE MEASUREMENT
     Route: 048
     Dates: start: 20170901, end: 20171118
  2. POTASSIUM [Concomitant]
     Active Substance: POTASSIUM

REACTIONS (6)
  - Condition aggravated [None]
  - Cough [None]
  - Drug ineffective [None]
  - Drug hypersensitivity [None]
  - Product substitution issue [None]
  - Hypertension [None]

NARRATIVE: CASE EVENT DATE: 20170901
